FAERS Safety Report 10053646 (Version 1)
Quarter: 2014Q2

REPORT INFORMATION
  Report Type: Spontaneous
  Country: US (occurrence: US)
  Receive Date: 20140402
  Receipt Date: 20140402
  Transmission Date: 20141212
  Serious: No
  Sender: FDA-Public Use
  Company Number: US-PFIZER INC-2014092921

PATIENT
  Age: 6 Year
  Sex: Male

DRUGS (2)
  1. QUILLIVANT XR [Suspect]
     Indication: DISTURBANCE IN ATTENTION
     Dosage: 6 ML, DAILY
     Dates: start: 2013
  2. QUILLIVANT XR [Suspect]
     Dosage: 8 ML, DAILY
     Dates: start: 20140316

REACTIONS (1)
  - Drug ineffective [Unknown]
